FAERS Safety Report 5265296-5 (Version None)
Quarter: 2007Q1

REPORT INFORMATION
  Report Type: 
  Country: None (occurrence: None)
  Receive Date: 20061214
  Receipt Date: 20051228
  Transmission Date: 20070707
  Serious: Yes (Other)
  Sender: FDA-Public Use
  Company Number: 2005UW19489

PATIENT
  Sex: Female

DRUGS (4)
  1. PULMICORT RESPULES [Suspect]
     Dosage: MIXED WITH DUONEB FOR 13 TREATMENTS
  2. PULMICORT RESPULES [Suspect]
     Dosage: NOT MIXED
     Dates: start: 20051227
  3. DUONEB [Suspect]
     Dosage: MIXED WITH PULMICORT RESPULES FOR 13 TREATMENTS
  4. DUONEB [Suspect]
     Dosage: NOT MIXED
     Dates: start: 20051227

REACTIONS (2)
  - DRUG ADMINISTRATION ERROR [None]
  - DRUG EFFECT DECREASED [None]
